FAERS Safety Report 25074525 (Version 1)
Quarter: 2025Q1

REPORT INFORMATION
  Report Type: Spontaneous
  Country: FR (occurrence: FR)
  Receive Date: 20250313
  Receipt Date: 20250313
  Transmission Date: 20250409
  Serious: Yes (Hospitalization, Disabling)
  Sender: ORGANON
  Company Number: FR-PFIZER INC-202500016133

PATIENT
  Age: 80 Year
  Sex: Male
  Weight: 172 kg

DRUGS (4)
  1. LIPTRUZET [Interacting]
     Active Substance: ATORVASTATIN CALCIUM\EZETIMIBE
  2. VYNDAQEL [Interacting]
     Active Substance: TAFAMIDIS MEGLUMINE
     Indication: Cardiac amyloidosis
     Dosage: 61 MG, 1X/DAY
     Route: 048
     Dates: start: 202309
  3. PANTOPRAZOLE [Concomitant]
     Active Substance: PANTOPRAZOLE
     Indication: Blood cholesterol abnormal
     Dosage: 20 MG, 2X/DAY
  4. ASPIRIN [Concomitant]
     Active Substance: ASPIRIN
     Indication: Blood cholesterol abnormal
     Dosage: 100 MG, 1X/DAY

REACTIONS (4)
  - Drug interaction [Not Recovered/Not Resolved]
  - Myalgia [Not Recovered/Not Resolved]
  - Tendon pain [Not Recovered/Not Resolved]
  - Abdominal pain upper [Recovering/Resolving]

NARRATIVE: CASE EVENT DATE: 20231203
